FAERS Safety Report 6880224-4 (Version None)
Quarter: 2010Q3

REPORT INFORMATION
  Report Type: 
  Country: None (occurrence: None)
  Receive Date: 20100728
  Receipt Date: 20100714
  Transmission Date: 20110219
  Serious: Yes (Hospitalization)
  Sender: FDA-Public Use
  Company Number: JP-SANOFI-AVENTIS-2010SA042518

PATIENT
  Age: 45 Year
  Sex: Male
  Weight: 74.6 kg

DRUGS (5)
  1. MYTELASE [Suspect]
     Indication: MYASTHENIA GRAVIS
     Route: 048
     Dates: start: 20090429, end: 20100613
  2. NORVASC [Concomitant]
     Indication: HYPERTENSION
     Route: 048
  3. LAC B [Concomitant]
     Indication: PRODUCT USED FOR UNKNOWN INDICATION
     Route: 048
  4. DEPAS [Concomitant]
     Route: 048
  5. SUNITINIB MALATE [Concomitant]
     Indication: RENAL CELL CARCINOMA
     Dosage: TWO 12.5MG CAPSULES ( FOR EACH DOSE IN THE THERAPY CYCLE)
     Route: 048
     Dates: start: 20070727

REACTIONS (1)
  - ACUTE RESPIRATORY FAILURE [None]
